FAERS Safety Report 7463998-3 (Version None)
Quarter: 2011Q2

REPORT INFORMATION
  Report Type: 
  Country: None (occurrence: None)
  Receive Date: 20110506
  Receipt Date: 20110502
  Transmission Date: 20111010
  Serious: Yes (Hospitalization)
  Sender: FDA-Public Use
  Company Number: FR-BAXTER-2011BH011977

PATIENT
  Age: 56 Year
  Sex: Female

DRUGS (13)
  1. EPIRUBICIN HYDROCHLORIDE [Suspect]
     Route: 042
     Dates: start: 20100613, end: 20100613
  2. ESOMEPRAZOLE [Concomitant]
     Indication: PRODUCT USED FOR UNKNOWN INDICATION
     Route: 065
  3. FLUOROURACIL [Suspect]
     Route: 042
     Dates: start: 20100613, end: 20100613
  4. CYCLOPHOSPHAMIDE [Suspect]
     Route: 042
     Dates: start: 20100613, end: 20100613
  5. ZOPHREN [Concomitant]
     Indication: PREMEDICATION
     Route: 065
  6. SOLU-MEDROL [Concomitant]
     Indication: PREMEDICATION
     Route: 065
  7. EPIRUBICIN HYDROCHLORIDE [Suspect]
     Indication: BREAST CANCER
     Route: 042
     Dates: start: 20100803, end: 20100803
  8. CYCLOPHOSPHAMIDE [Suspect]
     Indication: BREAST CANCER
     Route: 042
     Dates: start: 20100803, end: 20100803
  9. EPIRUBICIN HYDROCHLORIDE [Suspect]
     Route: 042
     Dates: start: 20100602, end: 20100602
  10. CYCLOPHOSPHAMIDE [Suspect]
     Route: 042
     Dates: start: 20100602, end: 20100602
  11. FLUOROURACIL [Suspect]
     Indication: BREAST CANCER
     Route: 042
     Dates: start: 20100803, end: 20100803
  12. FLUOROURACIL [Suspect]
     Route: 042
     Dates: start: 20100602, end: 20100602
  13. FLECAINE [Concomitant]
     Indication: PRODUCT USED FOR UNKNOWN INDICATION
     Route: 065

REACTIONS (3)
  - PAIN [None]
  - SKIN EXFOLIATION [None]
  - MUCOSAL INFLAMMATION [None]
